FAERS Safety Report 7359900-5 (Version None)
Quarter: 2011Q1

REPORT INFORMATION
  Report Type: 
  Country: None (occurrence: None)
  Receive Date: 20110317
  Receipt Date: 20110307
  Transmission Date: 20110831
  Serious: Yes (Hospitalization)
  Sender: FDA-Public Use
  Company Number: US-ASTRAZENECA-2010SE44528

PATIENT
  Age: 52 Year
  Sex: Male
  Weight: 95.3 kg

DRUGS (4)
  1. SEROQUEL [Suspect]
     Route: 048
     Dates: start: 20100301, end: 20110304
  2. SEROQUEL [Suspect]
     Indication: BIPOLAR DISORDER
     Route: 048
     Dates: start: 19970101, end: 20100301
  3. KLONOPIN [Concomitant]
     Indication: PANIC ATTACK
  4. WELLBUTRIN [Concomitant]

REACTIONS (9)
  - INSOMNIA [None]
  - BLOOD CHOLESTEROL INCREASED [None]
  - HEMIPLEGIA [None]
  - THERAPEUTIC RESPONSE UNEXPECTED [None]
  - NO ADVERSE EVENT [None]
  - BLOOD TRIGLYCERIDES INCREASED [None]
  - CEREBRAL HAEMORRHAGE [None]
  - FATIGUE [None]
  - DRUG DOSE OMISSION [None]
